FAERS Safety Report 13162298 (Version 1)
Quarter: 2017Q1

REPORT INFORMATION
  Report Type: Report from Study
  Country: US (occurrence: US)
  Receive Date: 20170130
  Receipt Date: 20170130
  Transmission Date: 20170428
  Serious: Yes (Other)
  Sender: FDA-Public Use
  Company Number: PHEH2017US002058

PATIENT
  Age: 29 Year
  Sex: Female

DRUGS (1)
  1. ILARIS [Suspect]
     Active Substance: CANAKINUMAB
     Dosage: 150 MG, QMO
     Route: 065

REACTIONS (9)
  - Swelling [Unknown]
  - Pyrexia [Unknown]
  - Pain [Unknown]
  - Nausea [Unknown]
  - Tenderness [Unknown]
  - Juvenile idiopathic arthritis [Recovered/Resolved]
  - Pruritus [Unknown]
  - Oropharyngeal pain [Unknown]
  - Rash macular [Unknown]

NARRATIVE: CASE EVENT DATE: 20170108
